FAERS Safety Report 8575233-3 (Version None)
Quarter: 2012Q3

REPORT INFORMATION
  Report Type: 
  Country: None (occurrence: None)
  Receive Date: 20120807
  Receipt Date: 20120730
  Transmission Date: 20120928
  Serious: Yes (Other)
  Sender: FDA-Public Use
  Company Number: US-JNJFOC-20120520154

PATIENT
  Sex: Male
  Weight: 90.72 kg

DRUGS (3)
  1. AZATHIOPRINE SODIUM [Suspect]
     Indication: PRODUCT USED FOR UNKNOWN INDICATION
     Route: 048
     Dates: start: 20080101
  2. REMICADE [Suspect]
     Indication: COLITIS ULCERATIVE
     Route: 042
     Dates: start: 20080101
  3. LIALDA [Concomitant]
     Indication: COLITIS ULCERATIVE
     Route: 048

REACTIONS (11)
  - BONE LOSS [None]
  - CARDIAC DISORDER [None]
  - DRUG INEFFECTIVE [None]
  - INFUSION RELATED REACTION [None]
  - ADVERSE EVENT [None]
  - PAIN [None]
  - FLUSHING [None]
  - DIABETES MELLITUS [None]
  - RASH [None]
  - ARTHRALGIA [None]
  - BLOOD CHOLESTEROL INCREASED [None]
